FAERS Safety Report 10064115 (Version 3)
Quarter: 2014Q2

REPORT INFORMATION
  Report Type: Report from Study
  Country: NL (occurrence: NL)
  Receive Date: 20140408
  Receipt Date: 20140429
  Transmission Date: 20141212
  Serious: Yes (Hospitalization, Other)
  Sender: FDA-Public Use
  Company Number: NL-JNJFOC-20140317562

PATIENT
  Age: 78 Year
  Sex: Male

DRUGS (9)
  1. ABIRATERONE ACETATE [Suspect]
     Indication: PROSTATE CANCER
     Route: 048
     Dates: start: 20130328, end: 20130618
  2. ABIRATERONE ACETATE [Suspect]
     Indication: PROSTATE CANCER
     Dosage: 3 TABLETS IN A DAY
     Route: 048
     Dates: start: 20130910
  3. ABIRATERONE ACETATE [Suspect]
     Indication: PROSTATE CANCER
     Route: 048
     Dates: start: 20130618, end: 20130821
  4. FRAXODI [Suspect]
     Indication: PRODUCT USED FOR UNKNOWN INDICATION
     Dosage: 0.6 1DD1
     Route: 065
  5. ACENOCUMAROL [Suspect]
     Indication: PRODUCT USED FOR UNKNOWN INDICATION
     Route: 065
  6. LACTULOSE [Concomitant]
     Dosage: 1DD1
     Route: 065
  7. PANTOZOLE [Concomitant]
     Dosage: 1DD1
     Route: 065
  8. PREDNISONE [Concomitant]
     Dosage: 1DD1
     Route: 065
  9. PREDNISONE [Concomitant]
     Route: 065

REACTIONS (8)
  - Thrombophlebitis [Unknown]
  - Upper extremity mass [Unknown]
  - Haemoptysis [Unknown]
  - Haematoma [Unknown]
  - Prostatic specific antigen increased [Unknown]
  - Haemorrhage [Unknown]
  - Fatigue [Unknown]
  - Incorrect dose administered [Unknown]
